FAERS Safety Report 9098146 (Version 3)
Quarter: 2018Q2

REPORT INFORMATION
  Report Type: Spontaneous
  Country: US (occurrence: US)
  Receive Date: 20130213
  Receipt Date: 20180416
  Transmission Date: 20180711
  Serious: Yes (Death, Hospitalization, Other)
  Sender: FDA-Public Use
  Company Number: US-PFIZER INC-2013053278

PATIENT
  Age: 73 Year
  Sex: Female

DRUGS (8)
  1. EMPIRIN COMPOUND [Concomitant]
     Dosage: UNK
  2. ROBITUSSIN DM-P [Concomitant]
     Dosage: UNK
  3. TRIAMTERENE. [Concomitant]
     Active Substance: TRIAMTERENE
     Dosage: UNK
  4. CHLORAMPHENICOL [Suspect]
     Active Substance: CHLORAMPHENICOL
     Indication: CATARACT OPERATION
     Dosage: 0.5 %, 3 - 4 TIMES DAILY
     Route: 031
     Dates: start: 1979
  5. CHLORAMPHENICOL [Suspect]
     Active Substance: CHLORAMPHENICOL
     Dosage: 1%, IN RIGHT EYE
  6. CHLORAMPHENICOL/HYDROCORTISONE ACETATE/POLYMYXIN B SULFATE [Suspect]
     Active Substance: CHLORAMPHENICOL\HYDROCORTISONE ACETATE\POLYMYXIN B SULFATE
     Indication: CATARACT OPERATION
     Dosage: NIGHTLY
     Route: 031
     Dates: start: 1979
  7. DYAZIDE [Concomitant]
     Active Substance: HYDROCHLOROTHIAZIDE\TRIAMTERENE
     Dosage: UNK
  8. CARBACHOL [Concomitant]
     Active Substance: CARBACHOL
     Dosage: UNK

REACTIONS (1)
  - Aplastic anaemia [Fatal]
